FAERS Safety Report 9770353 (Version 2)
Quarter: 2013Q4

REPORT INFORMATION
  Report Type: Spontaneous
  Country: US (occurrence: US)
  Receive Date: 20131218
  Receipt Date: 20131218
  Transmission Date: 20140711
  Serious: No
  Sender: FDA-Public Use
  Company Number: US-009507513-1310USA005730

PATIENT
  Sex: Female

DRUGS (3)
  1. ZOSTAVAX [Suspect]
     Indication: PROPHYLAXIS
     Dosage: .65 ML
     Route: 058
     Dates: start: 20131009, end: 20131009
  2. FLUVIRIN [Concomitant]
     Indication: PROPHYLAXIS
     Route: 058
     Dates: start: 20131003, end: 20131003
  3. MERCK STERILE DILUENT [Suspect]
     Dosage: 0.7 ML, UNK
     Route: 058
     Dates: start: 20131009

REACTIONS (1)
  - Pain [Unknown]
